FAERS Safety Report 18149866 (Version 4)
Quarter: 2020Q4

REPORT INFORMATION
  Report Type: Spontaneous
  Country: US (occurrence: US)
  Receive Date: 20200814
  Receipt Date: 20201209
  Transmission Date: 20210113
  Serious: No
  Sender: FDA-Public Use
  Company Number: US-SA-2020SA207020

PATIENT

DRUGS (1)
  1. ADMELOG [Suspect]
     Active Substance: INSULIN LISPRO
     Dosage: UP TO 100 UNITS
     Route: 065
     Dates: start: 20200427

REACTIONS (2)
  - Suspected product quality issue [Recovered/Resolved]
  - Blood glucose increased [Recovered/Resolved]
